FAERS Safety Report 13441174 (Version 1)
Quarter: 2017Q2

REPORT INFORMATION
  Report Type: Spontaneous
  Country: SI (occurrence: SI)
  Receive Date: 20170413
  Receipt Date: 20170413
  Transmission Date: 20170830
  Serious: Yes (Other)
  Sender: FDA-Public Use
  Company Number: SI-ELI_LILLY_AND_COMPANY-SI201704003302

PATIENT
  Age: 61 Year
  Sex: Female

DRUGS (9)
  1. NOLPAZA [Concomitant]
     Active Substance: PANTOPRAZOLE SODIUM
  2. PRENESSA [Concomitant]
     Active Substance: PERINDOPRIL
     Dosage: UNK MG, UNK
  3. CITRIC ACID [Concomitant]
     Active Substance: CITRIC ACID MONOHYDRATE
  4. KALINOR                            /00031402/ [Concomitant]
     Active Substance: POTASSIUM CITRATE
  5. ASPIRINE PROTECT [Concomitant]
     Active Substance: ASPIRIN
  6. COUPET [Concomitant]
     Active Substance: ROSUVASTATIN CALCIUM
  7. MEDROL [Concomitant]
     Active Substance: METHYLPREDNISOLONE
  8. FORSTEO [Suspect]
     Active Substance: TERIPARATIDE
     Indication: OSTEOPOROSIS
     Dosage: 20 UG, QD
     Route: 058
     Dates: start: 20160301, end: 20170323
  9. MYCOPHENOLIC ACID. [Concomitant]
     Active Substance: MYCOPHENOLIC ACID

REACTIONS (3)
  - Vitreous adhesions [Recovered/Resolved]
  - Sinus tachycardia [Recovered/Resolved]
  - Pruritus [Recovered/Resolved]

NARRATIVE: CASE EVENT DATE: 20170323
